FAERS Safety Report 10558488 (Version 1)
Quarter: 2014Q4

REPORT INFORMATION
  Report Type: Spontaneous
  Country: GB (occurrence: GB)
  Receive Date: 20141031
  Receipt Date: 20141031
  Transmission Date: 20150529
  Serious: Yes (Other)
  Sender: FDA-Public Use
  Company Number: PHHY2014GB140519

PATIENT
  Age: 65 Year
  Sex: Female
  Weight: 64 kg

DRUGS (11)
  1. ATORVASTATIN [Concomitant]
     Active Substance: ATORVASTATIN
     Dosage: UNK UKN, UNK
     Route: 065
     Dates: start: 20140703
  2. VENTOLIN [Concomitant]
     Active Substance: ALBUTEROL SULFATE
     Dosage: UNK UKN, UNK
     Dates: start: 20140703, end: 20140926
  3. INDAPAMIDE. [Suspect]
     Active Substance: INDAPAMIDE
     Route: 065
  4. ADCAL [Concomitant]
     Dosage: UNK UKN, UNK
     Route: 065
     Dates: start: 20140703
  5. APIDRA [Concomitant]
     Active Substance: INSULIN GLULISINE
     Dosage: UNK UKN, UNK
     Dates: start: 20140731, end: 20140828
  6. LERCANIDIPINE HYDROCHLORIDE [Concomitant]
     Active Substance: LERCANIDIPINE HYDROCHLORIDE
     Dosage: UNK UKN, UNK
     Route: 065
     Dates: start: 20140703
  7. LOSARTAN [Concomitant]
     Active Substance: LOSARTAN
     Dosage: UNK UKN, UNK
     Route: 065
     Dates: start: 20140703
  8. SERETIDE [Concomitant]
     Active Substance: FLUTICASONE FUROATE\SALMETEROL XINAFOATE
     Dosage: UNK UKN, UNK
     Dates: start: 20140703
  9. IPRATROPIUM BROMIDE. [Concomitant]
     Active Substance: IPRATROPIUM BROMIDE
     Dosage: UNK UKN, UNK
     Route: 065
     Dates: start: 20140721
  10. ALENDRONIC ACID [Concomitant]
     Active Substance: ALENDRONIC ACID
     Dosage: UNK UKN, UNK
     Dates: start: 20140703
  11. METFORMIN [Concomitant]
     Active Substance: METFORMIN HYDROCHLORIDE
     Dosage: UNK UKN, UNK
     Route: 065
     Dates: start: 20140703

REACTIONS (1)
  - Tongue ulceration [Recovering/Resolving]

NARRATIVE: CASE EVENT DATE: 20141001
